FAERS Safety Report 5578113-0 (Version None)
Quarter: 2007Q4

REPORT INFORMATION
  Report Type: 
  Country: None (occurrence: None)
  Receive Date: 20071227
  Receipt Date: 20071214
  Transmission Date: 20080405
  Serious: Yes (Other)
  Sender: FDA-Public Use
  Company Number: DSA_30981_2007

PATIENT
  Age: 72 Year
  Sex: Male

DRUGS (4)
  1. ENALAPRIL MALEATE [Suspect]
     Indication: DRUG USE FOR UNKNOWN INDICATION
     Dosage: (DF)
  2. CLIPIZIDE (GLIPIZIDE) [Suspect]
     Indication: TYPE 2 DIABETES MELLITUS
     Dosage: (5 MG 1X/12 HOURS)
  3. ALPHA BLOCKERS [Concomitant]
  4. CALCIUM ANTAGONISTS [Concomitant]

REACTIONS (5)
  - BONE MARROW FAILURE [None]
  - DRUG INTERACTION [None]
  - PANCYTOPENIA [None]
  - REFUSAL OF TREATMENT BY PATIENT [None]
  - TYPE 2 DIABETES MELLITUS [None]
